FAERS Safety Report 5124565-X (Version None)
Quarter: 2006Q3

REPORT INFORMATION
  Report Type: 
  Country: None (occurrence: None)
  Receive Date: 20060821
  Receipt Date: 20060425
  Transmission Date: 20061208
  Serious: No
  Sender: FDA-Public Use
  Company Number: TPA2006A00717

PATIENT
  Age: 64 Year
  Sex: Female
  Weight: 49.4421 kg

DRUGS (6)
  1. ROZEREM [Suspect]
     Indication: INSOMNIA
     Dosage: PER ORAL
     Route: 048
  2. LUNESTA (ESZOPLICLONE) (2 MILLIGRAM, TABLETS) [Concomitant]
  3. HORMONES AND RELATED AGENTS (HORMONES AND RELATED AGENTS) [Concomitant]
  4. ASPIRIN [Concomitant]
  5. VITAMINS (VITAMINS) [Concomitant]
  6. AMBIEN [Concomitant]

REACTIONS (1)
  - DRUG INEFFECTIVE [None]
